FAERS Safety Report 17125812 (Version 2)
Quarter: 2019Q4

REPORT INFORMATION
  Report Type: Spontaneous
  Country: CA (occurrence: CA)
  Receive Date: 20191208
  Receipt Date: 20191223
  Transmission Date: 20200122
  Serious: Yes (Other)
  Sender: FDA-Public Use
  Company Number: CA-CELLTRION INC.-2019CA017803

PATIENT

DRUGS (16)
  1. INFLECTRA [Suspect]
     Active Substance: INFLIXIMAB-DYYB
     Dosage: 400 MG, (EVERY 0, 2, 6 THEN EVERY 8 WEEKS)
     Route: 042
     Dates: start: 20190612
  2. INFLECTRA [Suspect]
     Active Substance: INFLIXIMAB-DYYB
     Dosage: 800 MG (10MG/KG), EVERY 8 WEEKS
     Route: 042
     Dates: start: 20190418
  3. DEPO-PROVERA [Concomitant]
     Active Substance: MEDROXYPROGESTERONE ACETATE
     Dosage: UNK
     Route: 065
  4. PREDNISONE [PREDNISONE ACETATE] [Concomitant]
     Active Substance: PREDNISONE ACETATE
     Dosage: UNK
     Route: 065
     Dates: start: 20181105
  5. INFLECTRA [Suspect]
     Active Substance: INFLIXIMAB-DYYB
     Indication: COLITIS ULCERATIVE
     Dosage: 400 MG, (EVERY 0, 2, 6 THEN EVERY 8 WEEKS)
     Route: 042
     Dates: start: 20181119, end: 20190221
  6. INFLECTRA [Suspect]
     Active Substance: INFLIXIMAB-DYYB
     Dosage: 400 MG, EVERY 0, 2, 6 THEN EVERY 8 WEEKS
     Route: 042
     Dates: start: 20190809
  7. INFLECTRA [Suspect]
     Active Substance: INFLIXIMAB-DYYB
     Dosage: 800 MG (10MG/KG), EVERY 8 WEEKS
     Route: 042
     Dates: start: 20190930
  8. INFLECTRA [Suspect]
     Active Substance: INFLIXIMAB-DYYB
     Dosage: 800 MG, (10MG/KG), EVERY 8 WEEKS
     Route: 042
     Dates: start: 20191125
  9. SOLU-MEDROL [Concomitant]
     Active Substance: METHYLPREDNISOLONE SODIUM SUCCINATE
     Dosage: STARTED AND STOPPED FOR 48 HOURS BETWEEN DATES 06NOV2018 AND 12NOV2018
     Route: 042
     Dates: start: 201811, end: 201811
  10. METHYLPREDNISOLONE. [Concomitant]
     Active Substance: METHYLPREDNISOLONE
     Indication: PREMEDICATION
     Dosage: 100 MG, UNK
     Route: 042
  11. INFLECTRA [Suspect]
     Active Substance: INFLIXIMAB-DYYB
     Dosage: 400 MG, (EVERY 0, 2, 6 THEN EVERY 8 WEEKS)
     Route: 042
     Dates: start: 20190418
  12. FRAGMIN [Concomitant]
     Active Substance: DALTEPARIN SODIUM
     Dosage: UNK
     Route: 065
  13. INFLECTRA [Suspect]
     Active Substance: INFLIXIMAB-DYYB
     Dosage: 400 MG, (EVERY 0, 2, 6 THEN EVERY 8 WEEKS)
     Route: 042
     Dates: start: 20181228
  14. INFLECTRA [Suspect]
     Active Substance: INFLIXIMAB-DYYB
     Dosage: 400 MG, (EVERY 0, 2, 6 THEN EVERY 8 WEEKS)
     Route: 042
     Dates: start: 20190207
  15. IRON [Concomitant]
     Active Substance: IRON
     Dosage: UNK
     Route: 065
  16. CALCIUM + VIT D [Concomitant]
     Active Substance: CALCIUM\VITAMIN D
     Dosage: UNK
     Route: 065

REACTIONS (20)
  - Throat tightness [Recovered/Resolved]
  - Palpitations [Recovered/Resolved]
  - Face oedema [Recovered/Resolved]
  - Intentional product use issue [Recovering/Resolving]
  - Musculoskeletal stiffness [Not Recovered/Not Resolved]
  - Dyspnoea [Recovered/Resolved]
  - Blood pressure fluctuation [Not Recovered/Not Resolved]
  - Myalgia [Recovered/Resolved]
  - Pruritus [Recovered/Resolved]
  - Off label use [Unknown]
  - Inappropriate schedule of product administration [Unknown]
  - Weight decreased [Unknown]
  - Hypoaesthesia [Unknown]
  - Hot flush [Not Recovered/Not Resolved]
  - Vision blurred [Unknown]
  - Lacrimation increased [Recovered/Resolved]
  - Feeling hot [Recovered/Resolved]
  - Dyspnoea [Recovered/Resolved]
  - Erythema [Recovered/Resolved]
  - Heart rate irregular [Recovered/Resolved]

NARRATIVE: CASE EVENT DATE: 20190207
